FAERS Safety Report 24910443 (Version 2)
Quarter: 2025Q1

REPORT INFORMATION
  Report Type: Spontaneous
  Country: US (occurrence: US)
  Receive Date: 20250131
  Receipt Date: 20250205
  Transmission Date: 20250409
  Serious: No
  Sender: BIOGEN
  Company Number: US-BIOGEN-2024BI01266039

PATIENT
  Sex: Female

DRUGS (26)
  1. AVONEX [Suspect]
     Active Substance: INTERFERON BETA-1A
     Indication: Multiple sclerosis
     Dosage: INJECT 30 MCG (1 INJECTOR) INTRAMUSCULARLY ONCE WEEKLY
     Route: 050
     Dates: start: 20010901, end: 20150410
  2. AVONEX [Suspect]
     Active Substance: INTERFERON BETA-1A
  3. AVONEX [Suspect]
     Active Substance: INTERFERON BETA-1A
  4. AVONEX [Suspect]
     Active Substance: INTERFERON BETA-1A
  5. PROCHLORPERAZINE MALEATE [Concomitant]
     Active Substance: PROCHLORPERAZINE MALEATE
     Route: 050
  6. ALENDRONATE SODIUM [Concomitant]
     Active Substance: ALENDRONATE SODIUM
     Route: 050
  7. SUMATRIPTAN [Concomitant]
     Active Substance: SUMATRIPTAN
     Route: 050
  8. TRAMADOL HCL [Concomitant]
     Active Substance: TRAMADOL HYDROCHLORIDE
     Route: 050
  9. TOPIRAMATE [Concomitant]
     Active Substance: TOPIRAMATE
     Route: 050
  10. ESTROVEN MAXIMUM STRENGTH + ENERGY [Concomitant]
     Route: 050
  11. EMLA [Concomitant]
     Active Substance: LIDOCAINE\PRILOCAINE
     Route: 050
  12. SULFASALAZINE [Concomitant]
     Active Substance: SULFASALAZINE
     Route: 050
  13. SUCRALFATE [Concomitant]
     Active Substance: SUCRALFATE
     Route: 050
  14. MYCOPHENOLATE MOFETIL [Concomitant]
     Active Substance: MYCOPHENOLATE MOFETIL
     Route: 050
  15. GABAPENTIN [Concomitant]
     Active Substance: GABAPENTIN
     Route: 050
  16. CREON 5 [Concomitant]
     Route: 050
  17. DIPHENHYDRAMINE HYDROCHLORIDE [Concomitant]
     Active Substance: DIPHENHYDRAMINE HYDROCHLORIDE
     Route: 050
  18. PANTOPRAZOLE SODIUM [Concomitant]
     Active Substance: PANTOPRAZOLE SODIUM
     Route: 050
  19. VITAMIN D2 [Concomitant]
     Active Substance: ERGOCALCIFEROL
     Route: 050
  20. LIDOCAINE [Concomitant]
     Active Substance: LIDOCAINE
     Route: 050
  21. ATROPINE\DIPHENOXYLATE [Concomitant]
     Active Substance: ATROPINE\DIPHENOXYLATE
     Route: 050
  22. METHYLPHENIDATE HYDROCHLORIDE [Concomitant]
     Active Substance: METHYLPHENIDATE HYDROCHLORIDE
     Route: 050
  23. INTENSOL [Concomitant]
     Route: 050
  24. TIZANIDINE HYDROCHLORIDE [Concomitant]
     Active Substance: TIZANIDINE HYDROCHLORIDE
     Route: 050
  25. FAMOTIDINE [Concomitant]
     Active Substance: FAMOTIDINE
     Route: 050
  26. DIPHENHYDRAMINE HYDROCHLORIDE [Concomitant]
     Active Substance: DIPHENHYDRAMINE HYDROCHLORIDE
     Route: 050

REACTIONS (12)
  - Arthropod sting [Not Recovered/Not Resolved]
  - Balance disorder [Not Recovered/Not Resolved]
  - Loss of control of legs [Not Recovered/Not Resolved]
  - Confusional state [Not Recovered/Not Resolved]
  - Anxiety [Not Recovered/Not Resolved]
  - Decreased appetite [Not Recovered/Not Resolved]
  - Central nervous system lesion [Unknown]
  - Multiple sclerosis [Unknown]
  - Fall [Recovered/Resolved]
  - Hypoaesthesia [Not Recovered/Not Resolved]
  - Arthralgia [Not Recovered/Not Resolved]
  - Asthenia [Not Recovered/Not Resolved]

NARRATIVE: CASE EVENT DATE: 20230101
